FAERS Safety Report 5103532-6 (Version None)
Quarter: 2006Q3

REPORT INFORMATION
  Report Type: 
  Country: None (occurrence: None)
  Receive Date: 20060913
  Receipt Date: 20060904
  Transmission Date: 20061208
  Serious: Yes (Hospitalization)
  Sender: FDA-Public Use
  Company Number: SE-ROCHE-461789

PATIENT
  Age: 19 Year
  Sex: Male

DRUGS (1)
  1. ROACCUTAN [Suspect]
     Indication: ACNE
     Route: 048
     Dates: start: 20030615, end: 20040615

REACTIONS (5)
  - ANXIETY [None]
  - DEPRESSION [None]
  - OBSESSIVE THOUGHTS [None]
  - SUICIDE ATTEMPT [None]
  - WEIGHT DECREASED [None]
